FAERS Safety Report 8974411 (Version 1)
Quarter: 2012Q4

REPORT INFORMATION
  Report Type: Spontaneous
  Country: US (occurrence: None)
  Receive Date: 20121211
  Receipt Date: 20121211
  Transmission Date: 20130627
  Serious: Yes (Death, Hospitalization)
  Sender: FDA-Public Use
  Company Number: DKLU1086712

PATIENT
  Age: 36 Year
  Sex: Male

DRUGS (1)
  1. CHEMET [Suspect]
     Indication: METAL POISONING
     Route: 048

REACTIONS (14)
  - Renal failure [None]
  - Blood mercury abnormal [None]
  - Transaminases increased [None]
  - Neutropenia [None]
  - Pain [None]
  - Nausea [None]
  - White blood cell count decreased [None]
  - Metabolic acidosis [None]
  - Rhabdomyolysis [None]
  - Hypotension [None]
  - Haemodialysis [None]
  - Oxygen saturation decreased [None]
  - Chills [None]
  - Skin exfoliation [None]
